FAERS Safety Report 6119847-9 (Version None)
Quarter: 2009Q1

REPORT INFORMATION
  Report Type: 
  Country: None (occurrence: None)
  Receive Date: 20090316
  Receipt Date: 20090305
  Transmission Date: 20090719
  Serious: Yes (Hospitalization)
  Sender: FDA-Public Use
  Company Number: FR-PFIZER INC-2009180587

PATIENT

DRUGS (12)
  1. TAHOR [Suspect]
     Indication: BLOOD CHOLESTEROL
     Dosage: UNK
     Dates: start: 20081124
  2. ALDACTONE [Suspect]
     Indication: HYPERTENSION
     Dates: end: 20081205
  3. CARDENSIEL [Suspect]
     Dosage: UNK
     Route: 048
     Dates: start: 20081124
  4. MOPRAL [Suspect]
     Indication: MYOCARDIAL INFARCTION
     Dosage: UNK
     Route: 048
     Dates: start: 20081124
  5. KARDEGIC [Suspect]
     Indication: MYOCARDIAL INFARCTION
     Dosage: UNK
     Dates: start: 20081124
  6. LOVENOX [Suspect]
     Indication: MYOCARDIAL INFARCTION
     Route: 058
     Dates: start: 20081124, end: 20081206
  7. LEXOMIL [Suspect]
     Indication: ANXIETY
     Route: 048
     Dates: start: 20081125, end: 20081205
  8. VITAMIN B1 AND B6 [Suspect]
     Indication: ASTHENIA
     Route: 048
     Dates: start: 20081127, end: 20081205
  9. NICOPATCH [Suspect]
     Indication: SMOKING CESSATION THERAPY
     Route: 003
     Dates: start: 20081126, end: 20081204
  10. LASIX [Suspect]
     Indication: HYPERTENSION
     Route: 048
     Dates: start: 20081124, end: 20081129
  11. PLAVIX [Suspect]
     Indication: MYOCARDIAL INFARCTION
     Dosage: UNK
     Dates: start: 20081124
  12. NEXIUM [Concomitant]
     Route: 048
     Dates: end: 20081206

REACTIONS (1)
  - RASH [None]
